FAERS Safety Report 8176639-7 (Version None)
Quarter: 2012Q1

REPORT INFORMATION
  Report Type: 
  Country: None (occurrence: None)
  Receive Date: 20120301
  Receipt Date: 20120222
  Transmission Date: 20120608
  Serious: Yes (Other)
  Sender: FDA-Public Use
  Company Number: US-ABBOTT-12P-163-0907645-00

PATIENT
  Age: 62 Year
  Sex: Female

DRUGS (21)
  1. HUMIRA [Suspect]
     Dates: start: 20111201, end: 20120101
  2. OSCAL D3 [Concomitant]
     Indication: PRODUCT USED FOR UNKNOWN INDICATION
  3. LORAZEPAM [Concomitant]
     Indication: DEPRESSION
  4. MULTI-VITAMINS [Concomitant]
     Indication: PRODUCT USED FOR UNKNOWN INDICATION
     Dosage: DAILY
  5. SOMA [Concomitant]
     Indication: ARTHRITIS
     Dosage: AT BEDTIME
  6. PLAQUENIL [Suspect]
     Dates: start: 20120206
  7. COLESTIPOL HYDROCHLORIDE [Concomitant]
     Indication: DIARRHOEA
     Dosage: UP TO 3 TIMES DAILY, PRN
  8. ZOLPIDEM TARTRATE [Concomitant]
     Indication: INSOMNIA
     Dosage: 1 TAB AT NIGHT
  9. LEXAPRO [Concomitant]
     Indication: ANXIETY
  10. LOMOTIL [Concomitant]
     Indication: DIARRHOEA
  11. PLAQUENIL [Suspect]
     Indication: SYSTEMIC LUPUS ERYTHEMATOSUS
     Dosage: 2 TABS DAILY
     Dates: start: 20111201
  12. LORAZEPAM [Concomitant]
     Indication: ANXIETY
  13. FEMHRT [Concomitant]
     Indication: OESTROGEN REPLACEMENT THERAPY
     Dosage: 1/5 DAILY
  14. HUMIRA [Suspect]
     Indication: CROHN'S DISEASE
     Dates: start: 20110601, end: 20111201
  15. HUMIRA [Suspect]
     Dates: start: 20120201
  16. CELEBREX [Concomitant]
     Indication: ARTHRITIS
  17. PROTONIX [Concomitant]
     Indication: GASTROOESOPHAGEAL REFLUX DISEASE
  18. VITAMIN D [Concomitant]
     Indication: PRODUCT USED FOR UNKNOWN INDICATION
  19. NORCO [Concomitant]
     Indication: PAIN
     Dosage: 5/325, UP TO 3 TIMES DAILY, PRN
  20. LEXAPRO [Concomitant]
     Indication: DEPRESSION
  21. VITAMIN B-12 [Concomitant]
     Indication: PRODUCT USED FOR UNKNOWN INDICATION

REACTIONS (15)
  - NEUROLOGICAL SYMPTOM [None]
  - DIARRHOEA [None]
  - HYPOPHAGIA [None]
  - CONSTIPATION [None]
  - CROHN'S DISEASE [None]
  - NASOPHARYNGITIS [None]
  - DECREASED ACTIVITY [None]
  - MYELITIS [None]
  - STREPTOCOCCAL INFECTION [None]
  - CONDITION AGGRAVATED [None]
  - ACTIVITIES OF DAILY LIVING IMPAIRED [None]
  - CHRONIC SINUSITIS [None]
  - SYSTEMIC LUPUS ERYTHEMATOSUS [None]
  - RASH [None]
  - ABDOMINAL PAIN [None]
